FAERS Safety Report 5950413-1 (Version None)
Quarter: 2008Q4

REPORT INFORMATION
  Report Type: 
  Country: None (occurrence: None)
  Receive Date: 20081112
  Receipt Date: 20081103
  Transmission Date: 20090506
  Serious: Yes (Other)
  Sender: FDA-Public Use
  Company Number: GB-MERCK-0802GBR00081

PATIENT
  Age: 39 Year
  Sex: Female
  Weight: 74 kg

DRUGS (6)
  1. ISENTRESS [Suspect]
     Indication: HIV INFECTION
     Route: 048
     Dates: start: 20071228, end: 20080206
  2. TRUVADA [Concomitant]
     Indication: HIV INFECTION
     Route: 065
     Dates: start: 20060622
  3. RITONAVIR [Concomitant]
     Indication: HIV INFECTION
     Route: 048
     Dates: start: 20081011
  4. GABAPENTIN [Concomitant]
     Indication: NEURALGIA
     Route: 065
  5. DARUNAVIR [Concomitant]
     Indication: HIV INFECTION
     Route: 065
     Dates: start: 20081011
  6. ETRAVIRINE [Concomitant]
     Indication: HIV INFECTION
     Route: 065
     Dates: start: 20081011

REACTIONS (2)
  - CONJUNCTIVAL HYPERAEMIA [None]
  - RASH [None]
